FAERS Safety Report 5349022-7 (Version None)
Quarter: 2007Q2

REPORT INFORMATION
  Report Type: 
  Country: None (occurrence: None)
  Receive Date: 20070516
  Receipt Date: 20070308
  Transmission Date: 20071010
  Serious: No
  Sender: FDA-Public Use
  Company Number: 200711725US

PATIENT
  Age: 75 Year
  Sex: Female

DRUGS (6)
  1. APIDRA [Suspect]
     Indication: DIABETES MELLITUS
     Dosage: 15 U/DAY
     Dates: start: 20060801
  2. APIDRA [Suspect]
     Indication: DIABETES MELLITUS
     Dosage: 10 U/DAY
     Dates: start: 20060801
  3. APIDRA [Suspect]
     Indication: DIABETES MELLITUS
     Dosage: 15 U/DAY
     Dates: start: 20060801
  4. OPTICLIK [Suspect]
     Indication: DIABETES MELLITUS
     Dates: start: 20060901
  5. ZESTRIL [Concomitant]
  6. ATENOLOL [Concomitant]

REACTIONS (1)
  - VISUAL DISTURBANCE [None]
